FAERS Safety Report 10037768 (Version 2)
Quarter: 2014Q2

REPORT INFORMATION
  Report Type: Spontaneous
  Country: US (occurrence: US)
  Receive Date: 20140326
  Receipt Date: 20140508
  Transmission Date: 20141212
  Serious: No
  Sender: FDA-Public Use
  Company Number: US-PFIZER INC-2014082548

PATIENT
  Age: 85 Year
  Sex: Female
  Weight: 50.79 kg

DRUGS (2)
  1. LYRICA [Suspect]
     Indication: ARTHRALGIA
     Dosage: UNK, 2X/DAY
     Route: 048
     Dates: start: 201402
  2. LYRICA [Suspect]
     Indication: BURNING SENSATION

REACTIONS (3)
  - Burning sensation [Unknown]
  - Arthralgia [Unknown]
  - Therapeutic response changed [Unknown]
